FAERS Safety Report 18515910 (Version 1)
Quarter: 2020Q4

REPORT INFORMATION
  Report Type: Spontaneous
  Country: CA (occurrence: CA)
  Receive Date: 20201118
  Receipt Date: 20201118
  Transmission Date: 20210114
  Serious: Yes (Other)
  Sender: FDA-Public Use
  Company Number: CA-JNJFOC-20201110651

PATIENT
  Age: 44 Year
  Sex: Female
  Weight: 43 kg

DRUGS (3)
  1. INFLIXIMAB, RECOMBINANT [Suspect]
     Active Substance: INFLIXIMAB
     Indication: PRODUCT USED FOR UNKNOWN INDICATION
     Route: 042
  2. INFLIXIMAB [Suspect]
     Active Substance: INFLIXIMAB
     Indication: PRODUCT USED FOR UNKNOWN INDICATION
     Route: 042
  3. TEGRETOL [Concomitant]
     Active Substance: CARBAMAZEPINE
     Route: 065

REACTIONS (6)
  - Eye swelling [Unknown]
  - Ocular hyperaemia [Unknown]
  - Visual impairment [Unknown]
  - Condition aggravated [Unknown]
  - Eye discharge [Unknown]
  - Abdominal pain upper [Unknown]
